FAERS Safety Report 24918700 (Version 9)
Quarter: 2025Q2

REPORT INFORMATION
  Report Type: Spontaneous
  Country: GB (occurrence: GB)
  Receive Date: 20250203
  Receipt Date: 20250616
  Transmission Date: 20250717
  Serious: Yes (Other)
  Sender: ABBVIE
  Company Number: GB-002147023-NVSC2025GB010560

PATIENT
  Sex: Female

DRUGS (9)
  1. PREDNISOLONE [Suspect]
     Active Substance: PREDNISOLONE
     Indication: Product used for unknown indication
     Route: 065
  2. REMIBRUTINIB [Suspect]
     Active Substance: REMIBRUTINIB
     Indication: Angioedema
     Dosage: 300 MG, QMO
     Route: 065
  3. REMIBRUTINIB [Suspect]
     Active Substance: REMIBRUTINIB
     Indication: Angioedema
     Dosage: 300 MG, QMO
     Route: 065
  4. METHOTREXATE [Suspect]
     Active Substance: METHOTREXATE
     Indication: Product used for unknown indication
     Route: 065
  5. TOFACITINIB [Suspect]
     Active Substance: TOFACITINIB
     Indication: Product used for unknown indication
     Route: 065
  6. ANAKINRA [Suspect]
     Active Substance: ANAKINRA
     Indication: Product used for unknown indication
     Route: 065
  7. XOLAIR [Suspect]
     Active Substance: OMALIZUMAB
     Indication: Chronic spontaneous urticaria
     Route: 065
  8. RITUXIMAB [Suspect]
     Active Substance: RITUXIMAB
     Indication: Product used for unknown indication
     Route: 065
  9. CYCLOSPORINE [Suspect]
     Active Substance: CYCLOSPORINE
     Indication: Product used for unknown indication
     Route: 065

REACTIONS (8)
  - Angioedema [Unknown]
  - Condition aggravated [Unknown]
  - Treatment failure [Unknown]
  - Mental disorder [Unknown]
  - Drug intolerance [Unknown]
  - Chronic spontaneous urticaria [Unknown]
  - General symptom [Unknown]
  - Mental disorder due to a general medical condition [Unknown]
